FAERS Safety Report 10302032 (Version 1)
Quarter: 2014Q3

REPORT INFORMATION
  Report Type: Spontaneous
  Country: US (occurrence: None)
  Receive Date: 20140709
  Receipt Date: 20140709
  Transmission Date: 20150326
  Serious: Yes (Hospitalization)
  Sender: FDA-Public Use
  Company Number: None

PATIENT
  Age: 62 Year
  Sex: Female
  Weight: 135 kg

DRUGS (4)
  1. TRIAZOLAM. [Concomitant]
     Active Substance: TRIAZOLAM
  2. DIABETES MEDICATIONS [Concomitant]
     Active Substance: UNSPECIFIED INGREDIENT
  3. DULOXETINE [Concomitant]
     Active Substance: DULOXETINE
  4. DOFETILIDE [Suspect]
     Active Substance: DOFETILIDE
     Indication: ATRIAL FIBRILLATION
     Dosage: 1 CAP  BID  ORAL
     Route: 048
     Dates: start: 20140401, end: 20140501

REACTIONS (3)
  - Mood swings [None]
  - Emotional disorder [None]
  - Suicide attempt [None]

NARRATIVE: CASE EVENT DATE: 20140705
